FAERS Safety Report 14548263 (Version 1)
Quarter: 2018Q1

REPORT INFORMATION
  Report Type: Spontaneous
  Country: US (occurrence: US)
  Receive Date: 20180219
  Receipt Date: 20180219
  Transmission Date: 20180509
  Serious: No
  Sender: FDA-Public Use
  Company Number: US-ROCHE-1981656

PATIENT
  Sex: Female

DRUGS (10)
  1. DORZOLAMIDE [Concomitant]
     Active Substance: DORZOLAMIDE
  2. LAMOTRIGINE. [Concomitant]
     Active Substance: LAMOTRIGINE
  3. BRIMONIDINE TARTRATE. [Concomitant]
     Active Substance: BRIMONIDINE TARTRATE
  4. LEVETIRACETAM. [Concomitant]
     Active Substance: LEVETIRACETAM
  5. FOSAMAX [Concomitant]
     Active Substance: ALENDRONATE SODIUM
  6. NUTROPIN AQ [Suspect]
     Active Substance: SOMATROPIN
     Indication: HYPOPITUITARISM
     Route: 058
  7. LEVOTHYROXINE. [Concomitant]
     Active Substance: LEVOTHYROXINE
  8. HYDROCORTISONE. [Concomitant]
     Active Substance: HYDROCORTISONE
  9. VIMPAT [Concomitant]
     Active Substance: LACOSAMIDE
  10. TIMOLOL MALEATE. [Concomitant]
     Active Substance: TIMOLOL MALEATE

REACTIONS (1)
  - Osteoporosis [Unknown]
